FAERS Safety Report 24746368 (Version 1)
Quarter: 2024Q4

REPORT INFORMATION
  Report Type: Spontaneous
  Country: US (occurrence: US)
  Receive Date: 20241218
  Receipt Date: 20241218
  Transmission Date: 20250114
  Serious: No
  Sender: AUROBINDO
  Company Number: US-AUROBINDO-AUR-APL-2024-056381

PATIENT
  Sex: Female
  Weight: 54.4 kg

DRUGS (1)
  1. LENALIDOMIDE [Suspect]
     Active Substance: LENALIDOMIDE
     Indication: Plasma cell myeloma
     Dosage: UNK, DAILY (P.O. DAILY 28-DAY CYCLE)
     Route: 048

REACTIONS (3)
  - Nasopharyngitis [Unknown]
  - Urinary tract infection [Unknown]
  - White blood cell count increased [Unknown]
